FAERS Safety Report 9996489 (Version 1)
Quarter: 2014Q1

REPORT INFORMATION
  Report Type: Spontaneous
  Country: US (occurrence: None)
  Receive Date: 20140218
  Receipt Date: 20140218
  Transmission Date: 20141002
  Serious: Yes (Other)
  Sender: FDA-Public Use
  Company Number: 1000052421

PATIENT
  Age: 42 Year
  Sex: Female

DRUGS (5)
  1. VIIBRYD [Suspect]
     Indication: DEPRESSION
  2. PROZAC (FLUOXETINE HYDROCHLORIDE) (FLUOXETINE HYDROCHLORIDE) [Concomitant]
  3. PRISTIQ (DESVENLAFAXINE SUCCINATE) (DESVENLAFAXINE SUCCINATE) [Concomitant]
  4. TOPAMAX (TOPIRAMATE) (TOPIRAMATE) [Concomitant]
  5. PROVIGIL (MODAFINIL) (MODAFINIL) [Concomitant]

REACTIONS (3)
  - Depression [None]
  - Insomnia [None]
  - Feeling abnormal [None]
